FAERS Safety Report 6585233-0 (Version None)
Quarter: 2010Q1

REPORT INFORMATION
  Report Type: 
  Country: None (occurrence: None)
  Receive Date: 20100217
  Receipt Date: 20100209
  Transmission Date: 20100710
  Serious: Yes (Hospitalization)
  Sender: FDA-Public Use
  Company Number: DE-NAPPMUNDI-DEU-2010-0005899

PATIENT
  Sex: Male
  Weight: 123 kg

DRUGS (13)
  1. NONE [Suspect]
     Indication: PAIN
  2. NONE [Suspect]
     Indication: BACK PAIN
  3. PALLADONE [Suspect]
     Indication: PAIN
     Dosage: 48 MG, DAILY
     Route: 048
     Dates: start: 20091210
  4. PALLADONE [Suspect]
     Indication: BACK PAIN
  5. DULCOLAX                           /00064401/ [Concomitant]
  6. LYRICA [Concomitant]
  7. METOHEXAL                          /00376902/ [Concomitant]
  8. AMLODIPINE [Concomitant]
  9. RAMIPRIL [Concomitant]
  10. INFORM [Concomitant]
  11. RANITIC [Concomitant]
  12. ASPIRIN [Concomitant]
  13. TAMSUNAR [Concomitant]

REACTIONS (1)
  - FAECALOMA [None]
